FAERS Safety Report 4498469-X (Version None)
Quarter: 2004Q4

REPORT INFORMATION
  Report Type: 
  Country: None (occurrence: None)
  Receive Date: 20041105
  Receipt Date: 20041027
  Transmission Date: 20050328
  Serious: Yes (Hospitalization)
  Sender: FDA-Public Use
  Company Number: RENA-10975

PATIENT
  Age: 65 Year
  Sex: Female
  Weight: 46.4 kg

DRUGS (7)
  1. RENAGEL [Suspect]
     Indication: HYPERPHOSPHATAEMIA
     Dosage: 0.75 G DAILY PO
     Route: 048
     Dates: start: 20030827, end: 20040309
  2. RENAGEL [Suspect]
     Indication: HYPERPHOSPHATAEMIA
     Dosage: 1.5 G DAILY PO
     Route: 048
     Dates: start: 20040310, end: 20040328
  3. EPOETIN BETA [Concomitant]
  4. CIDEFERRON [Concomitant]
  5. MOSAPRIDE CITRATE [Concomitant]
  6. RABEPRAZOLE SODIUM [Concomitant]
  7. MECOBALAMIN [Concomitant]

REACTIONS (4)
  - C-REACTIVE PROTEIN INCREASED [None]
  - DIARRHOEA [None]
  - STOOLS WATERY [None]
  - WHITE BLOOD CELL COUNT INCREASED [None]
